FAERS Safety Report 9060952 (Version 2)
Quarter: 2013Q1

REPORT INFORMATION
  Report Type: Report from Study
  Country: CA (occurrence: CA)
  Receive Date: 20130213
  Receipt Date: 20130228
  Transmission Date: 20140127
  Serious: Yes (Death)
  Sender: FDA-Public Use
  Company Number: PHHY2013CA013204

PATIENT
  Age: 67 None
  Sex: Male

DRUGS (4)
  1. CLOZARIL [Suspect]
     Indication: SCHIZOAFFECTIVE DISORDER
     Dosage: 200 MG, UNK
     Route: 048
     Dates: start: 201211
  2. CLOZARIL [Suspect]
     Dosage: UNK
     Dates: start: 20121210
  3. INVEGA SUSTENNA [Concomitant]
     Dosage: 150 MG, EVERY 4 WEEKS
     Route: 030
  4. EPIVAL [Concomitant]
     Dosage: 500 MG, BID

REACTIONS (1)
  - Completed suicide [Fatal]
